FAERS Safety Report 5048398-8 (Version None)
Quarter: 2006Q2

REPORT INFORMATION
  Report Type: 
  Country: None (occurrence: None)
  Receive Date: 20060601
  Receipt Date: 20060323
  Transmission Date: 20061013
  Serious: No
  Sender: FDA-Public Use
  Company Number: 2006PV010785

PATIENT
  Age: 46 Year
  Sex: Male
  Weight: 117.028 kg

DRUGS (4)
  1. BYETTA [Suspect]
     Indication: DIABETES MELLITUS NON-INSULIN-DEPENDENT
     Dosage: 5 MCG;BID;SC
     Route: 058
     Dates: start: 20051221
  2. FORTAMET [Concomitant]
  3. GLIMEPIRIDE [Concomitant]
  4. ACTOS /USA/ [Concomitant]

REACTIONS (2)
  - NAUSEA [None]
  - UNEVALUABLE EVENT [None]
